FAERS Safety Report 5380939-3 (Version None)
Quarter: 2007Q2

REPORT INFORMATION
  Report Type: 
  Country: None (occurrence: None)
  Receive Date: 20070629
  Receipt Date: 20061207
  Transmission Date: 20071010
  Serious: Yes (Hospitalization)
  Sender: FDA-Public Use
  Company Number: US200612001101

PATIENT
  Age: 67 Year
  Sex: Female

DRUGS (9)
  1. HUMALOG [Suspect]
     Dates: start: 20020101, end: 20061021
  2. HUMALOG MIX 75/25 [Suspect]
     Indication: DIABETES MELLITUS
     Dosage: 46 U, EACH MORNING,; 26 U, EACH EVENING,; 48 U, EACH MORNING,; 28 U, EACH MORNING
     Dates: start: 20061201
  3. HUMALOG MIX 75/25 [Suspect]
     Indication: DIABETES MELLITUS
     Dosage: 46 U, EACH MORNING,; 26 U, EACH EVENING,; 48 U, EACH MORNING,; 28 U, EACH MORNING
     Dates: start: 20061201
  4. HUMALOG MIX 75/25 [Suspect]
     Indication: DIABETES MELLITUS
     Dosage: 46 U, EACH MORNING,; 26 U, EACH EVENING,; 48 U, EACH MORNING,; 28 U, EACH MORNING
     Dates: start: 20061202
  5. HUMALOG MIX 75/25 [Suspect]
     Indication: DIABETES MELLITUS
     Dosage: 46 U, EACH MORNING,; 26 U, EACH EVENING,; 48 U, EACH MORNING,; 28 U, EACH MORNING
     Dates: start: 20061202
  6. HUMULIN R [Suspect]
     Indication: DIABETES MELLITUS
     Dates: start: 20061021, end: 20061202
  7. LANTUS [Concomitant]
  8. AVANDIA [Concomitant]
  9. GLUCOPHAGE [Concomitant]

REACTIONS (6)
  - BLOOD GLUCOSE INCREASED [None]
  - DRUG INEFFECTIVE [None]
  - FATIGUE [None]
  - GASTRIC ULCER HAEMORRHAGE [None]
  - HYPERSENSITIVITY [None]
  - RECTAL HAEMORRHAGE [None]
